FAERS Safety Report 4850820-4 (Version None)
Quarter: 2005Q4

REPORT INFORMATION
  Report Type: 
  Country: None (occurrence: None)
  Receive Date: 20051208
  Receipt Date: 20050803
  Transmission Date: 20060501
  Serious: Yes (Hospitalization)
  Sender: FDA-Public Use
  Company Number: 2005BI014660

PATIENT
  Age: 45 Year
  Sex: Female

DRUGS (2)
  1. AVONEX [Suspect]
     Indication: MULTIPLE SCLEROSIS
     Dosage: IM
     Route: 030
     Dates: start: 20000630
  2. AVONEX [Suspect]
     Indication: MULTIPLE SCLEROSIS
     Dosage: IM
     Route: 030

REACTIONS (8)
  - ASTHENIA [None]
  - CONDITION AGGRAVATED [None]
  - DIPLOPIA [None]
  - EYE DISORDER [None]
  - HYPERTENSION [None]
  - MOVEMENT DISORDER [None]
  - MULTIPLE SCLEROSIS [None]
  - NUCLEAR MAGNETIC RESONANCE IMAGING ABNORMAL [None]
